FAERS Safety Report 24162506 (Version 1)
Quarter: 2024Q3

REPORT INFORMATION
  Report Type: Spontaneous
  Country: PL (occurrence: PL)
  Receive Date: 20240801
  Receipt Date: 20240801
  Transmission Date: 20241017
  Serious: Yes (Hospitalization)
  Sender: JOHNSON AND JOHNSON
  Company Number: None

PATIENT
  Age: 24 Year
  Sex: Female
  Weight: 76 kg

DRUGS (3)
  1. ACETAMINOPHEN [Suspect]
     Active Substance: ACETAMINOPHEN
     Indication: Drug abuse
     Dosage: DOSE UNKNOWN
     Route: 048
     Dates: start: 20201103, end: 20201103
  2. IBUPROFEN [Suspect]
     Active Substance: IBUPROFEN
     Indication: Drug abuse
     Dosage: DOSE UNKNOWN
     Route: 048
     Dates: start: 20201103, end: 20201103
  3. KETOPROFEN [Suspect]
     Active Substance: KETOPROFEN
     Indication: Drug abuse
     Dosage: DOSE UNKNOWN
     Route: 048
     Dates: start: 20201103, end: 20201103

REACTIONS (4)
  - Suicide attempt [Recovered/Resolved]
  - Nausea [Recovered/Resolved]
  - Somnolence [Recovered/Resolved]
  - Toxicity to various agents [Recovered/Resolved]
